FAERS Safety Report 9707696 (Version 2)
Quarter: 2013Q4

REPORT INFORMATION
  Report Type: Spontaneous
  Country: IT (occurrence: None)
  Receive Date: 20131121
  Receipt Date: 20131231
  Transmission Date: 20140711
  Serious: Yes (Other)
  Sender: FDA-Public Use
  Company Number: AUR-APL-2013-09592

PATIENT
  Age: 22 Year
  Sex: Female

DRUGS (2)
  1. AMOXICILLIN [Suspect]
     Indication: OROPHARYNGEAL PAIN
     Dosage: 2 GM  (2 GM, 1 IN 1 D), ORAL
     Route: 048
     Dates: start: 20131014, end: 20131017
  2. SERTRALINE (SERTRALINE) [Concomitant]

REACTIONS (2)
  - Urticaria [None]
  - Angioedema [None]
